FAERS Safety Report 17242797 (Version 2)
Quarter: 2020Q1

REPORT INFORMATION
  Report Type: Spontaneous
  Country: TH (occurrence: TH)
  Receive Date: 20200107
  Receipt Date: 20200128
  Transmission Date: 20200409
  Serious: Yes (Other)
  Sender: FDA-Public Use
  Company Number: TH-AMGEN-THASP2019217863

PATIENT
  Age: 10 Day
  Sex: Female

DRUGS (1)
  1. CINACALCET HCL [Suspect]
     Active Substance: CINACALCET HYDROCHLORIDE
     Indication: FAMILIAL HYPOCALCIURIC HYPERCALCAEMIA
     Dosage: 90 MILLIEQUIVALENT PER SQUARE METRE, QD
     Route: 065

REACTIONS (5)
  - Hungry bone syndrome [Unknown]
  - Hypoparathyroidism [Unknown]
  - Treatment failure [Unknown]
  - Off label use [Unknown]
  - Hypocalcaemia [Unknown]
